FAERS Safety Report 5849615-4 (Version None)
Quarter: 2008Q3

REPORT INFORMATION
  Report Type: 
  Country: None (occurrence: None)
  Receive Date: 20080815
  Receipt Date: 20080808
  Transmission Date: 20090109
  Serious: Yes (Other)
  Sender: FDA-Public Use
  Company Number: 2008SP016367

PATIENT
  Age: 71 Year

DRUGS (3)
  1. PEG-INTRON [Suspect]
     Indication: HEPATITIS C
     Dosage: 100 MCG QW SC
     Route: 058
     Dates: start: 20080415
  2. REBETOL [Suspect]
     Indication: HEPATITIS C
     Dosage: 600 MG QD PO; PO
     Route: 048
     Dates: end: 20080805
  3. REBETOL [Suspect]
     Indication: HEPATITIS C
     Dosage: 600 MG QD PO; PO
     Route: 048
     Dates: start: 20080415

REACTIONS (5)
  - BLOOD CREATINE INCREASED [None]
  - BLOOD PRESSURE DECREASED [None]
  - BLOOD UREA INCREASED [None]
  - BLOOD URIC ACID INCREASED [None]
  - HAEMOGLOBIN DECREASED [None]
